FAERS Safety Report 12721241 (Version 1)
Quarter: 2016Q3

REPORT INFORMATION
  Report Type: Spontaneous
  Country: US (occurrence: US)
  Receive Date: 20160907
  Receipt Date: 20160907
  Transmission Date: 20161109
  Serious: No
  Sender: FDA-Public Use
  Company Number: None

PATIENT
  Sex: Female

DRUGS (1)
  1. COPAXONE [Suspect]
     Active Substance: GLATIRAMER ACETATE
     Indication: MULTIPLE SCLEROSIS

REACTIONS (6)
  - Muscular weakness [None]
  - Dyspnoea [None]
  - Immediate post-injection reaction [None]
  - Gait disturbance [None]
  - Heart rate increased [None]
  - Ocular hyperaemia [None]
